FAERS Safety Report 5852258-X (Version None)
Quarter: 2008Q3

REPORT INFORMATION
  Report Type: 
  Country: None (occurrence: None)
  Receive Date: 20080821
  Receipt Date: 20080814
  Transmission Date: 20090109
  Serious: Yes (Hospitalization)
  Sender: FDA-Public Use
  Company Number: CN-NOVOPROD-268765

PATIENT
  Age: 64 Year
  Sex: Male
  Weight: 66 kg

DRUGS (3)
  1. NOVOLOG MIX 70/30 [Suspect]
     Indication: INSULIN-REQUIRING TYPE 2 DIABETES MELLITUS
     Dosage: 25 IU, QD
     Route: 058
     Dates: start: 20070406, end: 20070907
  2. NOVOLOG MIX 70/30 [Suspect]
     Dosage: 25 IU, QD
     Route: 058
     Dates: start: 20070914
  3. ANIRACETAM [Concomitant]
     Dosage: .3 G, QD
     Route: 048

REACTIONS (2)
  - CHEST DISCOMFORT [None]
  - HYPOGLYCAEMIA [None]
